FAERS Safety Report 9465700 (Version 2)
Quarter: 2013Q4

REPORT INFORMATION
  Report Type: Report from Study
  Country: CA (occurrence: CA)
  Receive Date: 20130820
  Receipt Date: 20131126
  Transmission Date: 20140711
  Serious: Yes (Other)
  Sender: FDA-Public Use
  Company Number: CA-JNJFOC-20130808066

PATIENT
  Age: 22 Year
  Sex: Male
  Weight: 69.8 kg

DRUGS (2)
  1. REMICADE [Suspect]
     Indication: CROHN^S DISEASE
     Route: 042
     Dates: start: 20130722
  2. REMICADE [Suspect]
     Indication: CROHN^S DISEASE
     Dosage: RE-INDUCTION OF INFLIXIMAB, TOTAL 14 MG RECEIVED
     Route: 042
     Dates: start: 20130812

REACTIONS (7)
  - Oxygen saturation decreased [Recovered/Resolved]
  - Dyspnoea [Recovered/Resolved]
  - Infusion related reaction [Recovered/Resolved]
  - Nasopharyngitis [Recovered/Resolved]
  - Cough [Recovered/Resolved]
  - Pallor [Recovered/Resolved]
  - Vomiting [Recovered/Resolved]
